FAERS Safety Report 11322374 (Version 1)
Quarter: 2015Q3

REPORT INFORMATION
  Report Type: Spontaneous
  Country: US (occurrence: None)
  Receive Date: 20150626
  Receipt Date: 20150626
  Transmission Date: 20151125
  Serious: No
  Sender: FDA-Public Use
  Company Number: 1000076181

PATIENT
  Sex: Female

DRUGS (1)
  1. LINZESS [Suspect]
     Active Substance: LINACLOTIDE
     Dosage: 145 MCG (145 MCG, ONCE EVERY 3 DAYS)
     Dates: start: 20150421

REACTIONS (2)
  - Diarrhoea [None]
  - Intentional product misuse [None]

NARRATIVE: CASE EVENT DATE: 20150421
